FAERS Safety Report 7605463-6 (Version None)
Quarter: 2011Q3

REPORT INFORMATION
  Report Type: 
  Country: None (occurrence: None)
  Receive Date: 20110713
  Receipt Date: 20110711
  Transmission Date: 20111222
  Serious: No
  Sender: FDA-Public Use
  Company Number: US-PFIZER INC-2011140347

PATIENT
  Sex: Male
  Weight: 63 kg

DRUGS (6)
  1. ACYCLOVIR [Concomitant]
     Indication: EYE DISORDER
     Dosage: 400 MG, DAILY
  2. TRIPROLIDINE [Concomitant]
     Indication: HERPES VIRUS INFECTION
     Dosage: UNK
  3. ZYVOX [Suspect]
     Indication: STAPHYLOCOCCAL INFECTION
     Dosage: 600 MG, 2X/DAY (10DAYS)
     Route: 048
     Dates: start: 20110620, end: 20110701
  4. ACYCLOVIR [Concomitant]
     Indication: HERPES VIRUS INFECTION
  5. LOTEMAX [Concomitant]
     Indication: HERPES VIRUS INFECTION
     Dosage: UNK
  6. TIMOLOL [Concomitant]
     Indication: EYE DISORDER
     Dosage: UNK

REACTIONS (4)
  - ASPARTATE AMINOTRANSFERASE ABNORMAL [None]
  - MEAN CELL VOLUME ABNORMAL [None]
  - ALANINE AMINOTRANSFERASE ABNORMAL [None]
  - DIARRHOEA [None]
